FAERS Safety Report 4445330-2 (Version None)
Quarter: 2004Q3

REPORT INFORMATION
  Report Type: 
  Country: None (occurrence: None)
  Receive Date: 20040730
  Receipt Date: 20040712
  Transmission Date: 20050211
  Serious: Yes (Hospitalization, Other)
  Sender: FDA-Public Use
  Company Number: PHEH2004US07426

PATIENT
  Age: 54 Year
  Sex: Female

DRUGS (9)
  1. GLEEVEC [Suspect]
     Dosage: 400 MG, BID, ORAL
     Route: 048
  2. AZTREONAM [Concomitant]
  3. CASPOFUNGIN [Concomitant]
  4. LEVOFLOXACIN [Concomitant]
  5. METRONIDAZOLE [Concomitant]
  6. ONDANSETRON [Concomitant]
  7. PANTOPRAZOLE [Concomitant]
  8. VANCOMYCIN [Concomitant]
  9. TPN (TYROSINE) [Concomitant]

REACTIONS (1)
  - GASTROINTESTINAL HAEMORRHAGE [None]
